FAERS Safety Report 7709344-9 (Version None)
Quarter: 2011Q3

REPORT INFORMATION
  Report Type: 
  Country: None (occurrence: None)
  Receive Date: 20110825
  Receipt Date: 20110822
  Transmission Date: 20111222
  Serious: Yes (Other)
  Sender: FDA-Public Use
  Company Number: AU-PFIZER INC-2011193922

PATIENT
  Age: 78 Year
  Sex: Male

DRUGS (7)
  1. MINIPRESS [Suspect]
     Indication: BLOOD PRESSURE
     Dosage: 0.5 MG, 2X/DAY
  2. MICARDIS [Concomitant]
     Dosage: 80 MG, UNK
  3. LOMOTIL [Concomitant]
     Indication: HAEMATOCHEZIA
  4. LOMOTIL [Concomitant]
     Indication: DIARRHOEA
     Dosage: UNK
  5. PANAMAX [Concomitant]
     Indication: ARTHRITIS
     Dosage: UNK
  6. PRILOSEC [Concomitant]
     Dosage: UNK
  7. PREDSOL RETENTION ENEMA [Concomitant]
     Dosage: TWICE A WEEK

REACTIONS (2)
  - CHEST DISCOMFORT [None]
  - DIARRHOEA HAEMORRHAGIC [None]
